FAERS Safety Report 13975790 (Version 3)
Quarter: 2017Q4

REPORT INFORMATION
  Report Type: Report from Study
  Country: NL (occurrence: NL)
  Receive Date: 20170915
  Receipt Date: 20171113
  Transmission Date: 20180321
  Serious: Yes (Other)
  Sender: FDA-Public Use
  Company Number: NL-CELGENEUS-NLD-20170901585

PATIENT
  Age: 74 Year
  Sex: Female

DRUGS (11)
  1. RITUXIMAB. [Suspect]
     Active Substance: RITUXIMAB
     Dosage: 4770 MILLIGRAM
     Route: 041
     Dates: start: 20170102, end: 20170120
  2. REVLIMID [Suspect]
     Active Substance: LENALIDOMIDE
     Indication: CHRONIC LYMPHOCYTIC LEUKAEMIA
     Dosage: 2.5 MG
     Route: 048
     Dates: start: 20140507, end: 20140526
  3. RITUXIMAB. [Suspect]
     Active Substance: RITUXIMAB
     Dosage: 4770 MILLIGRAM
     Route: 041
     Dates: start: 20140429
  4. REVLIMID [Suspect]
     Active Substance: LENALIDOMIDE
     Dosage: 2000
     Route: 048
     Dates: start: 20170102, end: 20170120
  5. CHLORAMBUCIL [Suspect]
     Active Substance: CHLORAMBUCIL
     Dosage: 12 MG
     Route: 065
     Dates: start: 20140429
  6. REVLIMID [Suspect]
     Active Substance: LENALIDOMIDE
     Dosage: 10 MG
     Route: 048
     Dates: start: 20140624, end: 20141020
  7. CHLORAMBUCIL [Suspect]
     Active Substance: CHLORAMBUCIL
     Indication: CHRONIC LYMPHOCYTIC LEUKAEMIA
     Dosage: 12 MG
     Route: 065
     Dates: start: 20140916, end: 20140922
  8. REVLIMID [Suspect]
     Active Substance: LENALIDOMIDE
     Dosage: 5 MG
     Route: 048
     Dates: start: 20140527, end: 20140623
  9. RITUXIMAB. [Suspect]
     Active Substance: RITUXIMAB
     Indication: CHRONIC LYMPHOCYTIC LEUKAEMIA
     Dosage: 830 MG
     Route: 041
     Dates: start: 20140916, end: 20140916
  10. REVLIMID [Suspect]
     Active Substance: LENALIDOMIDE
     Dosage: 5 MG
     Route: 048
     Dates: start: 20141021, end: 20150223
  11. REVLIMID [Suspect]
     Active Substance: LENALIDOMIDE
     Dosage: 2.5 MG
     Route: 048
     Dates: start: 20150224, end: 20150420

REACTIONS (1)
  - Breast cancer [Recovered/Resolved]

NARRATIVE: CASE EVENT DATE: 20170302
